FAERS Safety Report 4537286-9 (Version None)
Quarter: 2004Q4

REPORT INFORMATION
  Report Type: 
  Country: None (occurrence: None)
  Receive Date: 20041223
  Receipt Date: 20041210
  Transmission Date: 20050328
  Serious: Yes (Death)
  Sender: FDA-Public Use
  Company Number: GB-GLAXOSMITHKLINE-B0360749A

PATIENT
  Sex: Male

DRUGS (1)
  1. SEROXAT [Suspect]
     Indication: ANXIETY
     Route: 065
     Dates: start: 20030201

REACTIONS (3)
  - COMPLETED SUICIDE [None]
  - DYSPNOEA [None]
  - FEAR [None]
